FAERS Safety Report 18538935 (Version 1)
Quarter: 2020Q4

REPORT INFORMATION
  Report Type: Report from Study
  Country: CA (occurrence: CA)
  Receive Date: 20201124
  Receipt Date: 20201124
  Transmission Date: 20210114
  Serious: Yes (Other)
  Sender: FDA-Public Use
  Company Number: CA-REGENERON PHARMACEUTICALS, INC.-2020-88593

PATIENT

DRUGS (3)
  1. PRALUENT [Suspect]
     Active Substance: ALIROCUMAB
     Indication: ARTERIOSCLEROSIS
     Dosage: 75 MILLIGRAM, QOW
     Route: 058
     Dates: start: 20200916
  2. PRALUENT [Suspect]
     Active Substance: ALIROCUMAB
     Dosage: 75 MILLIGRAM
     Route: 058
     Dates: start: 202011
  3. ATORVASTATIN [Suspect]
     Active Substance: ATORVASTATIN
     Dosage: 5 MG, QOD

REACTIONS (3)
  - Myalgia [Recovered/Resolved]
  - Hip arthroplasty [Unknown]
  - Injection site pain [Recovered/Resolved]

NARRATIVE: CASE EVENT DATE: 2020
